FAERS Safety Report 4792051-2 (Version None)
Quarter: 2005Q4

REPORT INFORMATION
  Report Type: 
  Country: None (occurrence: None)
  Receive Date: 20051006
  Receipt Date: 20050919
  Transmission Date: 20060501
  Serious: Yes (Death)
  Sender: FDA-Public Use
  Company Number: AND_0053_2005

PATIENT
  Age: 73 Year

DRUGS (3)
  1. METFORMIN [Suspect]
     Dosage: DF UNK PO
     Route: 048
  2. DIGOXIN [Suspect]
     Dosage: DF UNK PO
     Route: 048
  3. VERAPAMIL [Suspect]
     Dosage: DF UNK PO
     Route: 048

REACTIONS (2)
  - MEDICATION ERROR [None]
  - MULTIPLE DRUG OVERDOSE [None]
